FAERS Safety Report 9570955 (Version 1)
Quarter: 2013Q3

REPORT INFORMATION
  Report Type: Spontaneous
  Country: US (occurrence: None)
  Receive Date: 20130927
  Receipt Date: 20130927
  Transmission Date: 20140515
  Serious: Yes (Other)
  Sender: FDA-Public Use
  Company Number: IPC201309-000368

PATIENT
  Age: 12 Year
  Sex: Female

DRUGS (4)
  1. HYDROXYCHLOROQUINE SULFATE (HYDROXYCHLOROQUINE SULFATE) (HYDROXYCHLOROQUINE SULFATE) [Suspect]
  2. METHOTREXATE [Suspect]
  3. MYCOPHENOLATE [Suspect]
  4. IMMUNOGLOBULIN [Suspect]
     Route: 042

REACTIONS (1)
  - Pigmentation disorder [None]
